FAERS Safety Report 12635564 (Version 2)
Quarter: 2016Q3

REPORT INFORMATION
  Report Type: Spontaneous
  Country: JP (occurrence: JP)
  Receive Date: 20160809
  Receipt Date: 20160812
  Transmission Date: 20161109
  Serious: No
  Sender: FDA-Public Use
  Company Number: JP-009507513-1608JPN003024

PATIENT
  Sex: Male

DRUGS (4)
  1. JANUVIA [Suspect]
     Active Substance: SITAGLIPTIN PHOSPHATE
     Indication: DIABETES MELLITUS
     Dosage: 50 MG, QD
     Route: 048
     Dates: start: 201508
  2. VALSARTAN. [Concomitant]
     Active Substance: VALSARTAN
     Indication: HYPERTENSION
     Dosage: DAILY DOSAGE UNKNOWN
     Route: 048
  3. GLIMEPIRIDE. [Concomitant]
     Active Substance: GLIMEPIRIDE
     Indication: DIABETES MELLITUS
     Dosage: DAILY DOSAGE UNKNOWN, FORMULATION:POR
     Route: 048
  4. AMLODIN (AMLODIPINE BESYLATE) [Concomitant]
     Active Substance: AMLODIPINE BESYLATE
     Indication: HYPERTENSION
     Dosage: DAILY DOSAGE UNKNOWN
     Route: 048
     Dates: start: 201508

REACTIONS (2)
  - Pyrexia [Unknown]
  - Oesophageal discomfort [Unknown]

NARRATIVE: CASE EVENT DATE: 201607
